FAERS Safety Report 6357975-3 (Version None)
Quarter: 2009Q3

REPORT INFORMATION
  Report Type: 
  Country: None (occurrence: None)
  Receive Date: 20090916
  Receipt Date: 20090908
  Transmission Date: 20100115
  Serious: Yes (Death)
  Sender: FDA-Public Use
  Company Number: US-GILEAD-2009-0024145

PATIENT
  Sex: Female
  Weight: 74.865 kg

DRUGS (9)
  1. LETAIRIS [Suspect]
     Indication: PULMONARY ARTERIAL HYPERTENSION
     Route: 048
     Dates: start: 20081126
  2. VIAGRA [Concomitant]
  3. NIFEDIPINE [Concomitant]
  4. NEUPOGEN [Concomitant]
  5. PREDNISONE TAB [Concomitant]
  6. HYDROCODONE BITARTRATE AND ACETAMINOPHEN [Concomitant]
  7. FAMOTIDINE [Concomitant]
  8. CYANOCOBALAMIN [Concomitant]
  9. CALCIUM + D [Concomitant]

REACTIONS (1)
  - DEATH [None]
